FAERS Safety Report 8734204 (Version 2)
Quarter: 2012Q4

REPORT INFORMATION
  Report Type: 
  Country: US (occurrence: US)
  Receive Date: 20120821
  Receipt Date: 20120913
  Transmission Date: 20130627
  Serious: No
  Sender: FDA-Public Use
  Company Number: US-PFIZER INC-2012200042

PATIENT
  Age: 8 Year
  Sex: Male
  Weight: 24 kg

DRUGS (14)
  1. NORDITROPIN [Suspect]
     Indication: BODY HEIGHT BELOW NORMAL
     Dosage: 0.5 mg, 1x/day
     Route: 058
     Dates: start: 20100715, end: 20100802
  2. MIRALAX [Concomitant]
     Dosage: UNK
  3. CALCIUM [Concomitant]
     Indication: SUPPLEMENTATION THERAPY
     Dosage: UNK
  4. ACETAMINOPHEN [Concomitant]
     Indication: PAIN
     Dosage: 325 mg, 1 Tablet every 4 to 6 hours as needed
  5. CALCI-MIX [Concomitant]
     Dosage: 500 mg (1,250 mg) Capsule, 1 Capsule(s) by mouth twice daily
  6. CLONAZEPAM [Concomitant]
     Dosage: 0.5 mg, 1x/day as needed
     Route: 048
  7. DIABETIC TUSSIN DM [Concomitant]
     Indication: COUGH
     Dosage: 10-100 mg/5 mL Syrup, 2.5 ml every four hours as needed
     Route: 048
  8. DIAZEPAM [Concomitant]
     Indication: CONVULSION
     Dosage: 5-7.5-10 mg Kit, 10 Milligram(s) rectally as directed as needed greater than 5 minutes duration
     Route: 054
  9. HYDROCHLOROTHIAZIDE [Concomitant]
     Dosage: 25 mg, 1/2 Tablet once daily
     Route: 048
  10. IBUPROFEN [Concomitant]
     Indication: PAIN
     Dosage: 100 mg, 1.5 Tablet every 6 to 8 hours as needed
     Route: 048
  11. POLYETHYLENE GLYCOL [Concomitant]
     Dosage: 34 g, as directed as needed Dissolve powder in 6 oz liquid
     Route: 048
  12. PSEUDOEPHEDRINE HYDROCHLORIDE [Concomitant]
     Indication: RESPIRATORY TRACT CONGESTION
     Dosage: 30 mg, 1/2 Tablet every six hours as needed
     Route: 048
  13. POTASSIUM CITRATE [Concomitant]
     Indication: SUPPLEMENTATION THERAPY
     Dosage: 1.8 g, 3x/day
  14. SELENIUM [Concomitant]
     Indication: SUPPLEMENTATION THERAPY
     Dosage: 50 ug, 2x/day
     Route: 048

REACTIONS (4)
  - Hypersensitivity [Recovered/Resolved]
  - Injection site bruising [Recovered/Resolved]
  - Pain in extremity [Recovered/Resolved]
  - Urticaria [Recovered/Resolved]
